FAERS Safety Report 8717007 (Version 4)
Quarter: 2012Q4

REPORT INFORMATION
  Report Type: 
  Country: US (occurrence: US)
  Receive Date: 20120810
  Receipt Date: 20120910
  Transmission Date: 20130627
  Serious: No
  Sender: FDA-Public Use
  Company Number: US-PFIZER INC-2012193788

PATIENT
  Age: 44 Year
  Sex: Male
  Weight: 74 kg

DRUGS (5)
  1. ADVIL [Suspect]
     Indication: PAIN
     Dosage: 400 mg to 800 mg as needed
  2. LIDOCAINE [Suspect]
     Indication: PAIN
     Dosage: UNK
  3. ALEVE [Suspect]
     Indication: PAIN
     Dosage: UNK, as needed
  4. ULTRACET [Suspect]
     Indication: PAIN
     Dosage: 37.5 mg,twice daily
  5. NASONEX [Concomitant]
     Indication: HYPERSENSITIVITY
     Dosage: UNK, daily

REACTIONS (1)
  - Drug ineffective [Recovering/Resolving]
